FAERS Safety Report 5622644-1 (Version None)
Quarter: 2008Q1

REPORT INFORMATION
  Report Type: 
  Country: None (occurrence: None)
  Receive Date: 20080211
  Receipt Date: 20080211
  Transmission Date: 20080703
  Serious: Yes (Disabling)
  Sender: FDA-Public Use
  Company Number: None

PATIENT
  Age: 24 Year
  Sex: Male
  Weight: 81.6475 kg

DRUGS (1)
  1. ADVAIR DISKUS   250MCG/SALMETEROL 50 MCG  GLAXO SMITH KLINE [Suspect]
     Indication: ASTHMA
     Dosage: 1 PUFF  2 A DAY (DURATION: FEW MONTHS)
     Dates: start: 20071010, end: 20071210

REACTIONS (4)
  - DEPRESSION [None]
  - FEELING ABNORMAL [None]
  - PERFORMANCE STATUS DECREASED [None]
  - VISION BLURRED [None]
